FAERS Safety Report 6355651-4 (Version None)
Quarter: 2009Q3

REPORT INFORMATION
  Report Type: 
  Country: None (occurrence: None)
  Receive Date: 20090910
  Receipt Date: 20090818
  Transmission Date: 20100115
  Serious: Yes (Other)
  Sender: FDA-Public Use
  Company Number: ADR16672009

PATIENT

DRUGS (1)
  1. LAMOTRIGINE [Suspect]

REACTIONS (7)
  - ABNORMAL FAECES [None]
  - HYPOGLYCAEMIA [None]
  - MATERNAL DRUGS AFFECTING FOETUS [None]
  - MUSCLE TWITCHING [None]
  - RESTLESSNESS [None]
  - UNEVALUABLE EVENT [None]
  - WITHDRAWAL SYNDROME [None]
